FAERS Safety Report 22592527 (Version 2)
Quarter: 2023Q2

REPORT INFORMATION
  Report Type: Spontaneous
  Country: IT (occurrence: IT)
  Receive Date: 20230613
  Receipt Date: 20230628
  Transmission Date: 20230722
  Serious: Yes (Hospitalization, Other)
  Sender: FDA-Public Use
  Company Number: IT-ROCHE-3360941

PATIENT
  Age: 73 Year
  Sex: Male

DRUGS (11)
  1. BENDAMUSTINE [Suspect]
     Active Substance: BENDAMUSTINE
     Indication: Follicular lymphoma
     Dosage: UNK
     Route: 065
     Dates: start: 2019
  2. LENALIDOMIDE [Suspect]
     Active Substance: LENALIDOMIDE
     Indication: Follicular lymphoma
     Dosage: UNK
     Route: 065
     Dates: start: 2022
  3. CHLORAMBUCIL [Suspect]
     Active Substance: CHLORAMBUCIL
     Indication: Follicular lymphoma
     Dosage: UNK
     Route: 065
     Dates: start: 2014
  4. RITUXIMAB [Suspect]
     Active Substance: RITUXIMAB
     Indication: Follicular lymphoma
     Dosage: UNK
     Route: 065
     Dates: start: 2014
  5. RITUXIMAB [Suspect]
     Active Substance: RITUXIMAB
     Dosage: UNK
     Route: 065
     Dates: start: 2019
  6. RITUXIMAB [Suspect]
     Active Substance: RITUXIMAB
     Dosage: UNK
     Route: 065
     Dates: start: 2022
  7. CEFTRIAXONE [Concomitant]
     Active Substance: CEFTRIAXONE
     Indication: Product used for unknown indication
     Dosage: UNK
     Route: 065
  8. METHYLPREDNISOLONE [Concomitant]
     Active Substance: METHYLPREDNISOLONE
     Indication: Product used for unknown indication
     Dosage: UNK
     Route: 065
  9. NIRMATRELVIR\RITONAVIR [Concomitant]
     Active Substance: NIRMATRELVIR\RITONAVIR
     Indication: COVID-19
     Dosage: 300/100 MG Q TWO TIMES A DAY
     Route: 065
  10. CILGAVIMAB\TIXAGEVIMAB [Concomitant]
     Active Substance: CILGAVIMAB\TIXAGEVIMAB
     Indication: Immunodeficiency
     Dosage: 300 MILLIGRAM
     Route: 030
  11. MOLNUPIRAVIR [Concomitant]
     Active Substance: MOLNUPIRAVIR
     Indication: COVID-19
     Dosage: 800 MILLIGRAM, TWO TIMES A DAY
     Route: 065

REACTIONS (1)
  - COVID-19 [Unknown]

NARRATIVE: CASE EVENT DATE: 20221001
